FAERS Safety Report 7226204-0 (Version None)
Quarter: 2011Q1

REPORT INFORMATION
  Report Type: 
  Country: None (occurrence: None)
  Receive Date: 20110114
  Receipt Date: 20101231
  Transmission Date: 20110831
  Serious: Yes (Other)
  Sender: FDA-Public Use
  Company Number: PHFR2010GB06126

PATIENT
  Sex: Male

DRUGS (1)
  1. CLOZARIL [Suspect]
     Indication: SCHIZOPHRENIA
     Dosage: UNK MG, UNK
     Route: 048
     Dates: start: 20070830, end: 20101230

REACTIONS (11)
  - NEUTROPENIA [None]
  - MALAISE [None]
  - INFLUENZA LIKE ILLNESS [None]
  - PLATELET COUNT DECREASED [None]
  - WHITE BLOOD CELL COUNT DECREASED [None]
  - NASOPHARYNGITIS [None]
  - INSOMNIA [None]
  - DIARRHOEA [None]
  - WEIGHT DECREASED [None]
  - INFLUENZA [None]
  - DEHYDRATION [None]
